FAERS Safety Report 6173234-6 (Version None)
Quarter: 2009Q2

REPORT INFORMATION
  Report Type: 
  Country: None (occurrence: None)
  Receive Date: 20090430
  Receipt Date: 20090421
  Transmission Date: 20091009
  Serious: Yes (Death, Other)
  Sender: FDA-Public Use
  Company Number: IN-PFIZER INC-2009201331

PATIENT

DRUGS (1)
  1. TRANEXAMIC ACID [Suspect]

REACTIONS (6)
  - BURNING SENSATION [None]
  - HYPOTENSION [None]
  - LOSS OF CONSCIOUSNESS [None]
  - MEDICATION ERROR [None]
  - MYOCLONUS [None]
  - VENTRICULAR FIBRILLATION [None]
